FAERS Safety Report 8084238 (Version 2)
Quarter: 2015Q1

REPORT INFORMATION
  Report Type: Spontaneous
  Country: US (occurrence: US)
  Receive Date: 20110810
  Receipt Date: 20150109
  Transmission Date: 20150721
  Serious: Yes (Other)
  Sender: FDA-Public Use
  Company Number: US-ROCHE-794234

PATIENT
  Sex: Female
  Weight: 48.12 kg

DRUGS (1)
  1. ACCUTANE [Suspect]
     Active Substance: ISOTRETINOIN
     Indication: ACNE
     Route: 065
     Dates: start: 199001, end: 199012

REACTIONS (5)
  - Osteoarthritis [Unknown]
  - Inflammatory bowel disease [Unknown]
  - Irritable bowel syndrome [Unknown]
  - Enterocolitis bacterial [Unknown]
  - Anxiety [Unknown]

NARRATIVE: CASE EVENT DATE: 2001
